FAERS Safety Report 23542660 (Version 1)
Quarter: 2024Q1

REPORT INFORMATION
  Report Type: Spontaneous
  Country: AU (occurrence: AU)
  Receive Date: 20240220
  Receipt Date: 20240220
  Transmission Date: 20240410
  Serious: Yes (Other)
  Sender: FDA-Public Use
  Company Number: AU-ALKEM LABORATORIES LIMITED-AU-ALKEM-2023-00198

PATIENT
  Age: 26 Month
  Sex: Female

DRUGS (1)
  1. TRIAMCINOLONE ACETONIDE [Suspect]
     Active Substance: TRIAMCINOLONE ACETONIDE
     Indication: Keloid scar
     Dosage: 10 MILLIGRAM, 2 DOSES (5 MG TAC EACH) 4 WEEKS APART
     Route: 065

REACTIONS (1)
  - Cushing^s syndrome [Recovered/Resolved]
